FAERS Safety Report 6999588-6 (Version None)
Quarter: 2010Q3

REPORT INFORMATION
  Report Type: 
  Country: None (occurrence: None)
  Receive Date: 20100920
  Receipt Date: 20091221
  Transmission Date: 20110219
  Serious: No
  Sender: FDA-Public Use
  Company Number: US-ASTRAZENECA-2009SE33041

PATIENT
  Sex: Female

DRUGS (1)
  1. SEROQUEL [Suspect]
     Indication: SLEEP DISORDER
     Route: 048
     Dates: start: 20091201

REACTIONS (3)
  - ABDOMINAL DISCOMFORT [None]
  - BOWEL MOVEMENT IRREGULARITY [None]
  - FLATULENCE [None]
